FAERS Safety Report 6816231-7 (Version None)
Quarter: 2010Q3

REPORT INFORMATION
  Report Type: 
  Country: None (occurrence: None)
  Receive Date: 20100702
  Receipt Date: 20100702
  Transmission Date: 20110219
  Serious: Yes (Hospitalization)
  Sender: FDA-Public Use
  Company Number: None

PATIENT
  Sex: Male
  Weight: 14.9 kg

DRUGS (4)
  1. DEXAMETHASONE [Suspect]
     Dosage: 56.25 MG
  2. MERCAPTOPURINE [Suspect]
     Dosage: 2350 MG
  3. METHOTREXATE [Suspect]
     Dosage: 72 MG
  4. VINCRISTINE SULFATE [Suspect]
     Dosage: 2.7 MG

REACTIONS (14)
  - BASAL GANGLIA INFARCTION [None]
  - BLOOD GLUCOSE DECREASED [None]
  - CARDIAC ARREST [None]
  - CENTRAL NERVOUS SYSTEM LESION [None]
  - CEREBRAL ISCHAEMIA [None]
  - CONVULSION [None]
  - ENCEPHALITIS [None]
  - INFECTION [None]
  - INFLAMMATION [None]
  - PROTEIN TOTAL INCREASED [None]
  - PYREXIA [None]
  - RED BLOOD CELL COUNT INCREASED [None]
  - UNRESPONSIVE TO STIMULI [None]
  - WHITE BLOOD CELL COUNT INCREASED [None]
